FAERS Safety Report 16398513 (Version 1)
Quarter: 2019Q2

REPORT INFORMATION
  Report Type: Spontaneous
  Country: DE (occurrence: DE)
  Receive Date: 20190606
  Receipt Date: 20190606
  Transmission Date: 20190711
  Serious: Yes (Death, Life-Threatening, Hospitalization)
  Sender: FDA-Public Use
  Company Number: DE-BAYER-2019-109937

PATIENT
  Age: 16 Year
  Sex: Male

DRUGS (1)
  1. ADEMPAS [Suspect]
     Active Substance: RIOCIGUAT
     Indication: PULMONARY HYPERTENSION
     Dosage: UNK
     Dates: end: 2014

REACTIONS (3)
  - Product use issue [None]
  - Cardiac failure chronic [Fatal]
  - Off label use [None]

NARRATIVE: CASE EVENT DATE: 2014
